FAERS Safety Report 24970403 (Version 2)
Quarter: 2025Q1

REPORT INFORMATION
  Report Type: Spontaneous
  Country: US (occurrence: US)
  Receive Date: 20250214
  Receipt Date: 20250221
  Transmission Date: 20250409
  Serious: No
  Sender: MYLAN
  Company Number: US-MYLANLABS-2025M1002251

PATIENT
  Age: 65 Year
  Sex: Male
  Weight: 80.74 kg

DRUGS (2)
  1. PROCTOFOAM HC [Suspect]
     Active Substance: HYDROCORTISONE ACETATE\PRAMOXINE HYDROCHLORIDE
     Indication: Rectal haemorrhage
     Dosage: 1 PERCENT, BID (TWICE A DAY)
     Route: 065
     Dates: start: 20250106
  2. PROCTOFOAM HC [Suspect]
     Active Substance: HYDROCORTISONE ACETATE\PRAMOXINE HYDROCHLORIDE
     Dosage: 1 PERCENT, QD (1 X DAY)
     Route: 065
     Dates: start: 20250108

REACTIONS (2)
  - Off label use [Unknown]
  - Device delivery system issue [Unknown]

NARRATIVE: CASE EVENT DATE: 20250106
